FAERS Safety Report 13587455 (Version 3)
Quarter: 2018Q1

REPORT INFORMATION
  Report Type: Spontaneous
  Country: US (occurrence: US)
  Receive Date: 20170526
  Receipt Date: 20180223
  Transmission Date: 20180508
  Serious: No
  Sender: FDA-Public Use
  Company Number: US-ACTELION-A-NJ2017-154256

PATIENT
  Age: 84 Year
  Sex: Male

DRUGS (8)
  1. FUROSEMIDE. [Concomitant]
     Active Substance: FUROSEMIDE
     Dosage: 20 MG, QOD AND 40 MG, QOD
     Dates: start: 2016
  2. SIMVASTATIN. [Concomitant]
     Active Substance: SIMVASTATIN
     Dosage: 20 MG, QD
  3. OPSUMIT [Suspect]
     Active Substance: MACITENTAN
     Indication: PULMONARY ARTERIAL HYPERTENSION
     Dosage: 10 MG, QD
     Route: 048
     Dates: start: 20170428
  4. ASPIRIN. [Concomitant]
     Active Substance: ASPIRIN
     Dosage: 81 MG, QD
  5. MULTIVITAMINUM [Concomitant]
     Dosage: UNK, QD
  6. CARVEDILOL. [Concomitant]
     Active Substance: CARVEDILOL
     Dosage: 12.5 MG, BID
     Dates: start: 2016
  7. VALSARTAN. [Concomitant]
     Active Substance: VALSARTAN
     Dosage: 160 MG, QD
  8. DAPSONE. [Concomitant]
     Active Substance: DAPSONE
     Dosage: 200 MG, PRN

REACTIONS (4)
  - Peripheral swelling [Not Recovered/Not Resolved]
  - Weight increased [Not Recovered/Not Resolved]
  - Asthenia [Unknown]
  - Sinusitis [Unknown]

NARRATIVE: CASE EVENT DATE: 201705
